FAERS Safety Report 9461228 (Version 1)
Quarter: 2013Q3

REPORT INFORMATION
  Report Type: Spontaneous
  Country: US (occurrence: None)
  Receive Date: 20130814
  Receipt Date: 20130814
  Transmission Date: 20140515
  Serious: Yes (Disabling)
  Sender: FDA-Public Use
  Company Number: None

PATIENT
  Age: 58 Year
  Sex: Female
  Weight: 81.65 kg

DRUGS (5)
  1. CIPROFLOXACIN [Suspect]
     Indication: DIVERTICULITIS
     Route: 048
     Dates: start: 20130707, end: 20130715
  2. ALLEGRA [Concomitant]
  3. OMEPRAZOL [Concomitant]
  4. LISINOPRIL [Concomitant]
  5. ACETAMINAPHINE [Concomitant]

REACTIONS (9)
  - Muscle spasms [None]
  - Neck pain [None]
  - Bursitis [None]
  - Tendonitis [None]
  - Gait disturbance [None]
  - Pain in extremity [None]
  - Sensation of heaviness [None]
  - Depression [None]
  - Walking aid user [None]
